FAERS Safety Report 15962494 (Version 1)
Quarter: 2019Q1

REPORT INFORMATION
  Report Type: Spontaneous
  Country: CN (occurrence: CN)
  Receive Date: 20190214
  Receipt Date: 20190214
  Transmission Date: 20190417
  Serious: Yes (Other)
  Sender: FDA-Public Use
  Company Number: CN-PFIZER INC-2019056954

PATIENT
  Age: 43 Year
  Sex: Female
  Weight: 59.5 kg

DRUGS (1)
  1. PHARMORUBICIN [Suspect]
     Active Substance: EPIRUBICIN
     Indication: CHEMOTHERAPY
     Dosage: 150 MG, 1X/DAY
     Route: 041
     Dates: start: 20181220, end: 20181220

REACTIONS (1)
  - Bone marrow failure [Recovered/Resolved]

NARRATIVE: CASE EVENT DATE: 20181228
